FAERS Safety Report 4805774-3 (Version None)
Quarter: 2005Q4

REPORT INFORMATION
  Report Type: 
  Country: None (occurrence: None)
  Receive Date: 20051018
  Receipt Date: 20051018
  Transmission Date: 20060501
  Serious: Yes (Other)
  Sender: FDA-Public Use
  Company Number: None

PATIENT
  Sex: Male

DRUGS (1)
  1. STRATTERA [Suspect]
     Indication: ATTENTION DEFICIT/HYPERACTIVITY DISORDER
     Dosage: ABOUT 6 MONTHS

REACTIONS (4)
  - DRUG INEFFECTIVE [None]
  - EDUCATIONAL PROBLEM [None]
  - PERSONALITY CHANGE [None]
  - SUICIDAL IDEATION [None]
